FAERS Safety Report 22014263 (Version 3)
Quarter: 2023Q1

REPORT INFORMATION
  Report Type: Report from Study
  Country: FR (occurrence: FR)
  Receive Date: 20230221
  Receipt Date: 20230331
  Transmission Date: 20230418
  Serious: Yes (Life-Threatening, Hospitalization)
  Sender: FDA-Public Use
  Company Number: None

PATIENT

DRUGS (5)
  1. IVOSIDENIB [Suspect]
     Active Substance: IVOSIDENIB
     Indication: Oligodendroglioma
     Dosage: 500 MG, QD
     Route: 048
     Dates: start: 20220804, end: 20221121
  2. KEPPRA [Concomitant]
     Active Substance: LEVETIRACETAM
     Indication: Epilepsy
     Dosage: 500 MG, BID
     Route: 065
     Dates: start: 2005
  3. VIMPAT [Concomitant]
     Active Substance: LACOSAMIDE
     Indication: Epilepsy
     Dosage: 100 MG, BID
     Route: 065
     Dates: start: 20180622
  4. VITAMIN D NOS [Concomitant]
     Active Substance: VITAMIN D NOS
     Indication: Epilepsy
     Dosage: 500 MG
     Route: 065
     Dates: start: 20180622
  5. VALIUM [Concomitant]
     Active Substance: DIAZEPAM
     Indication: Epilepsy
     Dosage: 5 MG, QD
     Route: 065
     Dates: start: 2005

REACTIONS (2)
  - Phlebitis [Recovered/Resolved]
  - Pulmonary embolism [Recovered/Resolved]

NARRATIVE: CASE EVENT DATE: 20221121
